FAERS Safety Report 6971396-1 (Version None)
Quarter: 2010Q3

REPORT INFORMATION
  Report Type: 
  Country: None (occurrence: None)
  Receive Date: 20100908
  Receipt Date: 20100825
  Transmission Date: 20110219
  Serious: Yes (Hospitalization)
  Sender: FDA-Public Use
  Company Number: GB-MYLANLABS-2010S1015539

PATIENT
  Age: 1 Year
  Sex: Male

DRUGS (1)
  1. ERYTHROMYCIN [Suspect]
     Indication: SEPSIS
     Route: 041

REACTIONS (2)
  - EXTRAVASATION [None]
  - SKIN NECROSIS [None]
